FAERS Safety Report 7342859-4 (Version None)
Quarter: 2011Q1

REPORT INFORMATION
  Report Type: 
  Country: None (occurrence: None)
  Receive Date: 20110302
  Receipt Date: 20110215
  Transmission Date: 20110831
  Serious: Yes (Life-Threatening, Hospitalization)
  Sender: FDA-Public Use
  Company Number: AUR-APL-2009-01073

PATIENT
  Age: 49 Year
  Sex: Female

DRUGS (6)
  1. ATENOLOL [Concomitant]
  2. PROCHLORPERAZINE [Concomitant]
  3. BENDROFLUMETHIAZIDE [Concomitant]
  4. NSAID NOS [Concomitant]
  5. LOSARTAN POTASSIUM [Suspect]
  6. METFORMIN HCL [Suspect]
     Indication: TYPE 2 DIABETES MELLITUS
     Dosage: ORAL
     Route: 048

REACTIONS (11)
  - PULMONARY OEDEMA [None]
  - LACTIC ACIDOSIS [None]
  - HYPOTENSION [None]
  - HAEMODIALYSIS [None]
  - HYPOXIA [None]
  - DIARRHOEA [None]
  - PERIARTHRITIS [None]
  - ABDOMINAL PAIN LOWER [None]
  - RENAL FAILURE ACUTE [None]
  - WHITE BLOOD CELL COUNT INCREASED [None]
  - VOMITING [None]
